FAERS Safety Report 13109811 (Version 1)
Quarter: 2017Q1

REPORT INFORMATION
  Report Type: Spontaneous
  Country: US (occurrence: US)
  Receive Date: 20170112
  Receipt Date: 20170112
  Transmission Date: 20170428
  Serious: Yes (Other)
  Sender: FDA-Public Use
  Company Number: US-ROCHE-1100585

PATIENT
  Age: 58 Year
  Sex: Female

DRUGS (14)
  1. NITRO DRIP [Concomitant]
     Dosage: PER MINUTE
     Route: 065
  2. NITRO DRIP [Concomitant]
     Dosage: INCREASED
     Route: 065
  3. ACTIVASE [Suspect]
     Active Substance: ALTEPLASE
     Dosage: DECREASED TO 35 CC PER HOUR
     Route: 065
  4. ASA [Concomitant]
     Active Substance: ASPIRIN
     Route: 065
  5. NITROSTAT [Concomitant]
     Active Substance: NITROGLYCERIN
     Route: 060
  6. NITRO DRIP [Concomitant]
     Dosage: INCRESED
     Route: 065
  7. NITRO DRIP [Concomitant]
     Dosage: INCRESED
     Route: 065
  8. MS [Concomitant]
     Active Substance: MORPHINE SULFATE
     Route: 040
  9. NITROSTAT [Concomitant]
     Active Substance: NITROGLYCERIN
     Dosage: REPEATED
     Route: 065
  10. NITRO DRIP [Concomitant]
     Dosage: INCREASED
     Route: 065
  11. ACTIVASE [Suspect]
     Active Substance: ALTEPLASE
     Indication: ACUTE MYOCARDIAL INFARCTION
     Route: 040
     Dates: start: 19950308
  12. NITRO DRIP [Concomitant]
     Dosage: INCREASED
     Route: 065
  13. NITRO DRIP [Concomitant]
     Dosage: INCREASED
     Route: 065
  14. NITRO DRIP [Concomitant]
     Dosage: INCREASED
     Route: 065

REACTIONS (2)
  - Ventricular extrasystoles [Unknown]
  - Extrasystoles [Not Recovered/Not Resolved]

NARRATIVE: CASE EVENT DATE: 19950308
